FAERS Safety Report 9954437 (Version 2)
Quarter: 2014Q2

REPORT INFORMATION
  Report Type: Spontaneous
  Country: JP (occurrence: JP)
  Receive Date: 20140304
  Receipt Date: 20140513
  Transmission Date: 20141212
  Serious: Yes (Hospitalization)
  Sender: FDA-Public Use
  Company Number: JP-PFIZER INC-2014060024

PATIENT
  Age: 25 Year
  Sex: Female
  Weight: 50 kg

DRUGS (17)
  1. ZOSYN [Suspect]
     Indication: POSTOPERATIVE FEVER
     Dosage: 4.5 G, 2X/DAY
     Route: 041
     Dates: start: 20131228, end: 20140104
  2. ZOSYN [Suspect]
     Indication: MOYAMOYA DISEASE
  3. ZOSYN [Suspect]
     Indication: PNEUMONIA ASPIRATION
  4. PENTCILLIN [Suspect]
     Indication: POSTOPERATIVE FEVER
     Dosage: 4 G, DAILY
     Route: 041
     Dates: start: 20131214, end: 20131227
  5. PENTCILLIN [Suspect]
     Indication: MOYAMOYA DISEASE
  6. PENTCILLIN [Suspect]
     Indication: PNEUMONIA ASPIRATION
  7. PANSPORIN [Suspect]
     Indication: POSTOPERATIVE FEVER
     Dosage: 2 G, DAILY
     Route: 041
     Dates: start: 20140104, end: 20140105
  8. PANSPORIN [Suspect]
     Indication: MOYAMOYA DISEASE
  9. PANSPORIN [Suspect]
     Indication: PNEUMONIA ASPIRATION
  10. NEOPHAGEN [Concomitant]
     Indication: HEPATIC FUNCTION ABNORMAL
     Dosage: 20 ML, DAILY
     Route: 041
     Dates: start: 20131227, end: 20140105
  11. RADICUT [Concomitant]
     Indication: CEREBRAL INFARCTION
     Dosage: 60 MG, DAILY
     Route: 041
     Dates: start: 20131214, end: 20131227
  12. PHYSIO 70 [Concomitant]
     Indication: HYPOPHAGIA
     Dosage: 1000 ML, DAILY
     Route: 041
     Dates: start: 20131228, end: 20140106
  13. NORVASC [Concomitant]
     Indication: HYPERTENSION
     Dosage: 5 MG, DAILY
     Route: 048
     Dates: start: 20131213, end: 20140106
  14. TAKEPRON [Concomitant]
     Indication: GASTROOESOPHAGEAL REFLUX DISEASE
     Dosage: 15 MG, DAILY
     Route: 048
     Dates: start: 20140101, end: 20140106
  15. FENILENE [Concomitant]
     Indication: ANAEMIA
     Dosage: 200 MG, DAILY
     Route: 048
     Dates: start: 20140104, end: 20140106
  16. PRAZAXA [Concomitant]
     Indication: VENOUS THROMBOSIS
     Dosage: 220 MG, DAILY
     Route: 048
     Dates: start: 20140105, end: 20140106
  17. IOMERON 300 [Concomitant]
     Dosage: 100 ML, DAILY
     Route: 041
     Dates: start: 20131208, end: 20131209

REACTIONS (2)
  - Erythema multiforme [Recovered/Resolved]
  - Drug ineffective [Unknown]
